FAERS Safety Report 21311696 (Version 1)
Quarter: 2022Q3

REPORT INFORMATION
  Report Type: Spontaneous
  Country: US (occurrence: US)
  Receive Date: 20220909
  Receipt Date: 20220909
  Transmission Date: 20221026
  Serious: Yes (Death, Hospitalization, Other)
  Sender: FDA-Public Use
  Company Number: US-ALVOGEN-2022-ALVOGEN-120836

PATIENT
  Age: 12 Year
  Sex: Male
  Weight: 83.85 kg

DRUGS (2)
  1. DEXAMETHASONE [Suspect]
     Active Substance: DEXAMETHASONE
     Indication: Haemophagocytic lymphohistiocytosis
  2. TOCILIZUMAB [Suspect]
     Active Substance: TOCILIZUMAB
     Indication: Haemophagocytic lymphohistiocytosis
     Dosage: ON DAY 15 OF HOSPITAL ADMISSION

REACTIONS (7)
  - Septic shock [Fatal]
  - Pneumonia fungal [Fatal]
  - Cardiac tamponade [Fatal]
  - Mental status changes [Fatal]
  - Respiratory failure [Fatal]
  - Pericardial effusion [Fatal]
  - Condition aggravated [Fatal]
